FAERS Safety Report 7580932-6 (Version None)
Quarter: 2011Q2

REPORT INFORMATION
  Report Type: 
  Country: None (occurrence: None)
  Receive Date: 20110629
  Receipt Date: 20110620
  Transmission Date: 20111010
  Serious: Yes (Other)
  Sender: FDA-Public Use
  Company Number: BR-US-EMD SERONO, INC.-7063833

PATIENT
  Sex: Male

DRUGS (4)
  1. TAMIRAM (LEVOFLOXACIN) [Concomitant]
  2. ENALAPRIL MALEATE [Concomitant]
  3. REBIF [Suspect]
     Indication: RELAPSING-REMITTING MULTIPLE SCLEROSIS
     Dates: start: 20070817
  4. ACETAMINOPHEN [Concomitant]

REACTIONS (5)
  - TREMOR [None]
  - INFLUENZA LIKE ILLNESS [None]
  - PNEUMONIA [None]
  - PYREXIA [None]
  - PAIN [None]
